FAERS Safety Report 24841292 (Version 2)
Quarter: 2025Q1

REPORT INFORMATION
  Report Type: Spontaneous
  Country: US (occurrence: US)
  Receive Date: 20250114
  Receipt Date: 20250122
  Transmission Date: 20250409
  Serious: No
  Sender: MERCK
  Company Number: US-009507513-2501USA002137

PATIENT
  Sex: Female
  Weight: 88 kg

DRUGS (21)
  1. WINREVAIR [Suspect]
     Active Substance: SOTATERCEPT-CSRK
  2. REMODULIN [Suspect]
     Active Substance: TREPROSTINIL
     Indication: Pulmonary arterial hypertension
     Route: 058
     Dates: start: 20230119
  3. ZYRTEC [Concomitant]
     Active Substance: CETIRIZINE HYDROCHLORIDE
  4. MARINOL [Concomitant]
     Active Substance: DRONABINOL
  5. FAMOTIDINE [Concomitant]
     Active Substance: FAMOTIDINE
  6. JARDIANCE [Concomitant]
     Active Substance: EMPAGLIFLOZIN
  7. LORAZEPAM [Concomitant]
     Active Substance: LORAZEPAM
  8. BUMETANIDE [Concomitant]
     Active Substance: BUMETANIDE
  9. METOLAZONE [Concomitant]
     Active Substance: METOLAZONE
  10. VITAMIN D2 [Concomitant]
     Active Substance: ERGOCALCIFEROL
  11. KLOR-CON M20 [Concomitant]
     Active Substance: POTASSIUM CHLORIDE
  12. DOXYCYCLINE HYCLATE [Concomitant]
     Active Substance: DOXYCYCLINE HYCLATE
  13. SEROQUEL XR [Concomitant]
     Active Substance: QUETIAPINE FUMARATE
  14. VITAMIN D3 [Concomitant]
     Active Substance: CHOLECALCIFEROL
  15. SPIRONOLACTONE [Concomitant]
     Active Substance: SPIRONOLACTONE
  16. ASPIRIN [Concomitant]
     Active Substance: ASPIRIN
  17. CETIRIZINE HCL [Concomitant]
     Active Substance: CETIRIZINE HYDROCHLORIDE
  18. AMBRISENTAN [Concomitant]
     Active Substance: AMBRISENTAN
  19. ONDANSETRON HYDROCHLORIDE [Concomitant]
     Active Substance: ONDANSETRON HYDROCHLORIDE
  20. SILDENAFIL [Concomitant]
     Active Substance: SILDENAFIL
  21. NAPROXEN [Concomitant]
     Active Substance: NAPROXEN

REACTIONS (3)
  - Headache [Unknown]
  - Nausea [Unknown]
  - Lethargy [Unknown]
